FAERS Safety Report 17204909 (Version 1)
Quarter: 2019Q4

REPORT INFORMATION
  Report Type: Spontaneous
  Country: IN (occurrence: IN)
  Receive Date: 20191227
  Receipt Date: 20191227
  Transmission Date: 20200122
  Serious: Yes (Hospitalization)
  Sender: FDA-Public Use
  Company Number: IN-ANIPHARMA-2019-IN-000102

PATIENT
  Age: 55 Year
  Sex: Male

DRUGS (1)
  1. PHENYTOIN SODIUM (NON-SPECIFIC) [Suspect]
     Active Substance: PHENYTOIN SODIUM
     Indication: IDIOPATHIC GENERALISED EPILEPSY
     Dosage: 400 MG DAILY
     Route: 048

REACTIONS (1)
  - Hyperammonaemic encephalopathy [Recovered/Resolved]
